FAERS Safety Report 23660238 (Version 1)
Quarter: 2024Q1

REPORT INFORMATION
  Report Type: Spontaneous
  Country: GB (occurrence: GB)
  Receive Date: 20240321
  Receipt Date: 20240321
  Transmission Date: 20240410
  Serious: Yes (Other)
  Sender: FDA-Public Use
  Company Number: GB-AMGEN-GBRSP2024054863

PATIENT
  Age: 31 Year
  Sex: Male
  Weight: 83 kg

DRUGS (1)
  1. ADALIMUMAB [Suspect]
     Active Substance: ADALIMUMAB\ISOPROPYL ALCOHOL
     Indication: Psoriasis
     Dosage: 40 MILLIGRAM,S/C EVERY 2/52
     Route: 058
     Dates: start: 20231120, end: 20240306

REACTIONS (1)
  - Panic attack [Recovering/Resolving]

NARRATIVE: CASE EVENT DATE: 20240305
